FAERS Safety Report 21267850 (Version 1)
Quarter: 2022Q3

REPORT INFORMATION
  Report Type: Spontaneous
  Country: US (occurrence: US)
  Receive Date: 20220829
  Receipt Date: 20220829
  Transmission Date: 20221027
  Serious: Yes (Hospitalization)
  Sender: FDA-Public Use
  Company Number: US-JNJFOC-20220844094

PATIENT
  Age: 70 Year
  Sex: Male

DRUGS (3)
  1. SPRAVATO [Suspect]
     Active Substance: ESKETAMINE
     Indication: Depression
     Dosage: ^56 MG, 2 TOTAL DOSES^
     Dates: start: 20220204, end: 20220208
  2. SPRAVATO [Suspect]
     Active Substance: ESKETAMINE
     Dosage: ^70 MG, 1 TOTAL DOSE^
     Dates: start: 20220211, end: 20220211
  3. SPRAVATO [Suspect]
     Active Substance: ESKETAMINE
     Dosage: ^84 MG, 24 TOTAL DOSES^
     Dates: start: 20220215, end: 20220728

REACTIONS (1)
  - Hospitalisation [Unknown]

NARRATIVE: CASE EVENT DATE: 20220101
